FAERS Safety Report 6388620-9 (Version None)
Quarter: 2009Q4

REPORT INFORMATION
  Report Type: 
  Country: None (occurrence: None)
  Receive Date: 20091005
  Receipt Date: 20091005
  Transmission Date: 20100525
  Serious: Yes (Death)
  Sender: FDA-Public Use
  Company Number: IT-WYE-G04557709

PATIENT
  Sex: Male

DRUGS (4)
  1. TYGACIL [Suspect]
     Indication: SEPSIS
     Route: 042
     Dates: start: 20090914, end: 20090923
  2. COLIMICIN [Concomitant]
     Dosage: 10 ML
     Route: 042
     Dates: start: 20090914, end: 20090923
  3. ECALTA [Concomitant]
     Dosage: 100 MG
     Route: 042
     Dates: start: 20090914, end: 20090923
  4. FRAXIPARINE [Concomitant]
     Dosage: 0.8 ML
     Route: 058
     Dates: start: 20090909, end: 20090923

REACTIONS (1)
  - THROMBOCYTOPENIA [None]
